FAERS Safety Report 17870654 (Version 1)
Quarter: 2020Q2

REPORT INFORMATION
  Report Type: Spontaneous
  Country: US (occurrence: US)
  Receive Date: 20200605
  Receipt Date: 20200605
  Transmission Date: 20200714
  Serious: Yes (Life-Threatening, Hospitalization)
  Sender: FDA-Public Use
  Company Number: None

PATIENT
  Age: 60 Year
  Sex: Female
  Weight: 133.7 kg

DRUGS (11)
  1. XARELTO 10 MG PO DAILY [Concomitant]
  2. NORCO 5-325 X1 PO BID [Concomitant]
  3. SINGULAIR 5 MG X2 PO DAILY [Concomitant]
  4. GLIMEPIRIDE 4 MG PO DAILY [Concomitant]
  5. ATROVENT 3ML Q6H [Concomitant]
  6. CLONIDINE HCL 0.2 MG PO DAILY [Concomitant]
  7. ADVAIR DISKUS 500-50 1 PUFFBLD [Concomitant]
  8. THEOPHYLLINE 400 MG PO DAILY [Concomitant]
  9. TRAZODONE 100 MG PO BEDTIME [Concomitant]
  10. DIGOXIN. [Suspect]
     Active Substance: DIGOXIN
     Indication: ATRIAL FIBRILLATION
     Route: 048
  11. FUROSEMIDE 40 MG PO BID [Concomitant]

REACTIONS (3)
  - Hypotension [None]
  - Dyspnoea [None]
  - Bradycardia [None]

NARRATIVE: CASE EVENT DATE: 20190929
